FAERS Safety Report 7985084-6 (Version None)
Quarter: 2011Q4

REPORT INFORMATION
  Report Type: 
  Country: None (occurrence: None)
  Receive Date: 20111216
  Receipt Date: 20111207
  Transmission Date: 20120403
  Serious: Yes (Hospitalization, Other)
  Sender: FDA-Public Use
  Company Number: PHHY2011JP107349

PATIENT
  Sex: Female
  Weight: 47 kg

DRUGS (6)
  1. ITRACONAZOLE [Concomitant]
     Indication: IRON OVERLOAD
     Dosage: 20 MG, UNK
     Dates: start: 20081220, end: 20090108
  2. RED BLOOD CELLS, CONCENTRATED [Concomitant]
     Dosage: UNK
     Dates: start: 20101201, end: 20101215
  3. GRAN [Concomitant]
     Route: 042
  4. ZYRTEC [Concomitant]
  5. EXJADE [Suspect]
     Indication: IRON OVERLOAD
     Dosage: 1000 MG, DAILY
     Route: 048
     Dates: start: 20081201, end: 20081225
  6. SUPRECUR [Concomitant]

REACTIONS (6)
  - HEPATIC FUNCTION ABNORMAL [None]
  - PANCYTOPENIA [None]
  - PURPURA [None]
  - CONJUNCTIVAL HAEMORRHAGE [None]
  - PYREXIA [None]
  - HYPERSENSITIVITY [None]
